FAERS Safety Report 5893968-8 (Version None)
Quarter: 2008Q3

REPORT INFORMATION
  Report Type: 
  Country: None (occurrence: None)
  Receive Date: 20080923
  Receipt Date: 20080903
  Transmission Date: 20090109
  Serious: No
  Sender: FDA-Public Use
  Company Number: US-B.I. PHARMACEUTICALS,INC./RIDGEFIELD-2008-BP-14166BP

PATIENT
  Sex: Female

DRUGS (2)
  1. ZANTAC 150 [Suspect]
     Indication: GASTRITIS
     Dosage: 150MG
     Route: 048
     Dates: start: 20080801
  2. ZANTAC 150 [Suspect]
     Indication: NAUSEA

REACTIONS (7)
  - DRUG INEFFECTIVE FOR UNAPPROVED INDICATION [None]
  - DRY EYE [None]
  - DRY MOUTH [None]
  - FEELING JITTERY [None]
  - NASAL DRYNESS [None]
  - VULVOVAGINAL BURNING SENSATION [None]
  - VULVOVAGINAL DRYNESS [None]
